FAERS Safety Report 14207497 (Version 2)
Quarter: 2018Q1

REPORT INFORMATION
  Report Type: Spontaneous
  Country: US (occurrence: US)
  Receive Date: 20171121
  Receipt Date: 20180208
  Transmission Date: 20180508
  Serious: No
  Sender: FDA-Public Use
  Company Number: US-JNJFOC-20171014734

PATIENT
  Sex: Male

DRUGS (9)
  1. ZANAFLEX [Concomitant]
     Active Substance: TIZANIDINE HYDROCHLORIDE
  2. METOPROLOL. [Concomitant]
     Active Substance: METOPROLOL
  3. LEVOTHYROXINE. [Concomitant]
     Active Substance: LEVOTHYROXINE
  4. FENTANYL. [Concomitant]
     Active Substance: FENTANYL
  5. ZOFRAN [Concomitant]
     Active Substance: ONDANSETRON HYDROCHLORIDE
  6. MORPHINE [Concomitant]
     Active Substance: MORPHINE
  7. IMBRUVICA [Suspect]
     Active Substance: IBRUTINIB
     Indication: CHRONIC LYMPHOCYTIC LEUKAEMIA
     Route: 048
     Dates: start: 20170307, end: 20171011
  8. TRAMADOL. [Concomitant]
     Active Substance: TRAMADOL
  9. COZAAR [Concomitant]
     Active Substance: LOSARTAN POTASSIUM

REACTIONS (2)
  - Renal function test abnormal [Not Recovered/Not Resolved]
  - Hepatic function abnormal [Not Recovered/Not Resolved]

NARRATIVE: CASE EVENT DATE: 2017
